FAERS Safety Report 13246852 (Version 1)
Quarter: 2017Q1

REPORT INFORMATION
  Report Type: Spontaneous
  Country: AU (occurrence: AU)
  Receive Date: 20170217
  Receipt Date: 20170217
  Transmission Date: 20170428
  Serious: Yes (Other)
  Sender: FDA-Public Use
  Company Number: AU-ROCHE-1891905

PATIENT
  Sex: Female

DRUGS (2)
  1. MABTHERA [Suspect]
     Active Substance: RITUXIMAB
     Indication: NON-HODGKIN^S LYMPHOMA
     Route: 042
  2. MABTHERA [Suspect]
     Active Substance: RITUXIMAB
     Indication: SJOGREN^S SYNDROME
     Route: 042
     Dates: end: 201601

REACTIONS (6)
  - Drug hypersensitivity [Recovered/Resolved]
  - Nervous system disorder [Unknown]
  - Off label use [Unknown]
  - Optic nerve disorder [Unknown]
  - Ulcerative keratitis [Unknown]
  - Malaise [Unknown]
